FAERS Safety Report 20641581 (Version 1)
Quarter: 2022Q1

REPORT INFORMATION
  Report Type: Spontaneous
  Country: DE (occurrence: DE)
  Receive Date: 20220328
  Receipt Date: 20220328
  Transmission Date: 20220423
  Serious: Yes (Other)
  Sender: FDA-Public Use
  Company Number: DE-NOVARTISPH-NVSC2022DE064511

PATIENT
  Sex: Female

DRUGS (3)
  1. CETIRIZINE [Suspect]
     Active Substance: CETIRIZINE HYDROCHLORIDE
     Indication: Hypersensitivity
     Dosage: 1 DOSAGE FORM (AS NECESSARY)
     Route: 048
     Dates: start: 2000
  2. LEVOTHYROXINE SODIUM [Concomitant]
     Active Substance: LEVOTHYROXINE SODIUM
     Indication: Thyroid operation
     Dosage: 88 UG, QD
     Route: 048
     Dates: start: 2008
  3. SYNTARIS [Concomitant]
     Indication: Hypersensitivity
     Dosage: UNK
     Route: 045
     Dates: start: 2000

REACTIONS (8)
  - Skin burning sensation [Recovered/Resolved]
  - Swelling face [Recovered/Resolved]
  - Skin wrinkling [Recovered/Resolved]
  - Erythema [Recovered/Resolved]
  - Ear swelling [Recovered/Resolved]
  - Pruritus [Recovered/Resolved]
  - Paraesthesia oral [Recovered/Resolved]
  - Wrong technique in product usage process [Not Recovered/Not Resolved]

NARRATIVE: CASE EVENT DATE: 20220309
